FAERS Safety Report 12396903 (Version 1)
Quarter: 2016Q2

REPORT INFORMATION
  Report Type: Spontaneous
  Country: None (occurrence: None)
  Receive Date: 20160523
  Receipt Date: 20160523
  Transmission Date: 20160815
  Serious: Yes (Other)
  Sender: FDA-Public Use
  Company Number: None

PATIENT
  Sex: Female

DRUGS (15)
  1. METFORMIN [Concomitant]
     Active Substance: METFORMIN HYDROCHLORIDE
  2. SAVELLA [Concomitant]
     Active Substance: MILNACIPRAN HYDROCHLORIDE
  3. PROGESTERONE. [Concomitant]
     Active Substance: PROGESTERONE
  4. OMEPRAZOLE. [Concomitant]
     Active Substance: OMEPRAZOLE
  5. BUTRANS [Suspect]
     Active Substance: BUPRENORPHINE
     Indication: PAIN
     Dosage: APPLIED TYO A SURFACE, USUALLY THE SKIN
     Route: 061
     Dates: start: 20160503, end: 20160507
  6. DOCULACE [Concomitant]
  7. RAMIPRIL. [Concomitant]
     Active Substance: RAMIPRIL
  8. BACLOFEN. [Concomitant]
     Active Substance: BACLOFEN
  9. PRAVASTATIN [Concomitant]
     Active Substance: PRAVASTATIN\PRAVASTATIN SODIUM
  10. TOPAMAX [Concomitant]
     Active Substance: TOPIRAMATE
  11. MYRBETRIC [Concomitant]
  12. TRAZODONE [Concomitant]
     Active Substance: TRAZODONE HYDROCHLORIDE
  13. METOPROLOL. [Concomitant]
     Active Substance: METOPROLOL
  14. ASPIRIN/DIPYRAMIDOLE [Concomitant]
  15. VITD [Concomitant]

REACTIONS (7)
  - Abnormal dreams [None]
  - Photopsia [None]
  - Hallucination [None]
  - Tremor [None]
  - Blindness transient [None]
  - Paraesthesia [None]
  - Middle insomnia [None]

NARRATIVE: CASE EVENT DATE: 20160503
